FAERS Safety Report 13191239 (Version 1)
Quarter: 2017Q1

REPORT INFORMATION
  Report Type: Spontaneous
  Country: ES (occurrence: ES)
  Receive Date: 20170207
  Receipt Date: 20170207
  Transmission Date: 20170428
  Serious: Yes (Other)
  Sender: FDA-Public Use
  Company Number: ES-ASTRAZENECA-2017SE12281

PATIENT
  Age: 72 Year
  Sex: Female

DRUGS (1)
  1. RILAST [Suspect]
     Active Substance: BUDESONIDE\FORMOTEROL
     Indication: ASTHMA
     Dosage: 320 MICROGRAMS/9 MICROGRAMS/INHALATION INHALATION POWDER, 1 INHALER OF 60 DOSES (BUDESONIDE/FORMO...
     Route: 055
     Dates: start: 20161125, end: 20161125

REACTIONS (5)
  - Hyperhidrosis [Unknown]
  - Drug abuse [Unknown]
  - Incorrect dose administered [Recovered/Resolved]
  - Tremor [Unknown]
  - Palpitations [Unknown]

NARRATIVE: CASE EVENT DATE: 20161125
